FAERS Safety Report 6078440-7 (Version None)
Quarter: 2009Q1

REPORT INFORMATION
  Report Type: 
  Country: None (occurrence: None)
  Receive Date: 20090212
  Receipt Date: 20090130
  Transmission Date: 20090719
  Serious: Yes (Hospitalization)
  Sender: FDA-Public Use
  Company Number: 2009PV037539

PATIENT
  Sex: Female

DRUGS (22)
  1. SYMLIN [Suspect]
     Indication: TYPE 2 DIABETES MELLITUS
     Dosage: 60 MCG; TID; SC
     Route: 058
  2. ANAESTHETICS (UNDEFINED) [Suspect]
     Indication: CATHETERISATION CARDIAC
     Dates: start: 20090115, end: 20090115
  3. LANTUS [Concomitant]
  4. HUMALOG [Concomitant]
  5. ACTOS [Concomitant]
  6. AMARYL [Concomitant]
  7. GLUCOPHAGE [Concomitant]
  8. ALTACE [Concomitant]
  9. FUROSEMIDE [Concomitant]
  10. IMDUR [Concomitant]
  11. METHYLDOPA [Concomitant]
  12. PROTONIX [Concomitant]
  13. RISPERDAL [Concomitant]
  14. SLO-MAG [Concomitant]
  15. ZETIA [Concomitant]
  16. ZOCOR [Concomitant]
  17. ASPIRIN [Concomitant]
  18. ACETAMINOPHEN [Concomitant]
  19. MILK OF MAGNESIA [Concomitant]
  20. MAALOX [Concomitant]
  21. OLANZAPINE [Concomitant]
  22. TRAZODONE HCL [Concomitant]

REACTIONS (5)
  - AGGRESSION [None]
  - BLOOD GLUCOSE FLUCTUATION [None]
  - CONFUSIONAL STATE [None]
  - DELIRIUM [None]
  - REFUSAL OF TREATMENT BY PATIENT [None]
